FAERS Safety Report 9486954 (Version 4)
Quarter: 2013Q4

REPORT INFORMATION
  Report Type: Spontaneous
  Country: US (occurrence: US)
  Receive Date: 20130829
  Receipt Date: 20131017
  Transmission Date: 20140711
  Serious: Yes (Other)
  Sender: FDA-Public Use
  Company Number: US-TEVA-428222USA

PATIENT
  Sex: Male
  Weight: 66.28 kg

DRUGS (5)
  1. CARVEDILOL [Suspect]
  2. SOTALOL [Suspect]
  3. AMIODARONE [Suspect]
     Dates: start: 201206
  4. HYDROCHLOROTHIAZIDE [Concomitant]
     Indication: DIURETIC THERAPY
     Dosage: EVERY OTHER DAY
     Route: 048
  5. LISINOPRIL [Concomitant]
     Dosage: 10 MILLIGRAM DAILY; 1/2 TAB PO BID
     Route: 048

REACTIONS (4)
  - Ejection fraction decreased [Recovering/Resolving]
  - Toxicity to various agents [Recovering/Resolving]
  - Cardiac failure congestive [Unknown]
  - General physical condition abnormal [Unknown]
